FAERS Safety Report 16494104 (Version 1)
Quarter: 2019Q2

REPORT INFORMATION
  Report Type: Spontaneous
  Country: DE (occurrence: DE)
  Receive Date: 20190628
  Receipt Date: 20190628
  Transmission Date: 20190711
  Serious: Yes (Other)
  Sender: FDA-Public Use
  Company Number: DE-TEVA-2019-DE-1067570

PATIENT
  Age: 29 Year
  Sex: Male

DRUGS (2)
  1. TOIPIRAMAT AUROBINDO [Concomitant]
     Active Substance: TOPIRAMATE
  2. LAMOTRIGIN ABZ 100 MG TABLETTEN [Suspect]
     Active Substance: LAMOTRIGINE
     Route: 048

REACTIONS (1)
  - Epilepsy [Recovered/Resolved]
